FAERS Safety Report 9500095 (Version 1)
Quarter: 2013Q1

REPORT INFORMATION
  Report Type: Spontaneous
  Country: US (occurrence: None)
  Receive Date: 20130107
  Receipt Date: 20130107
  Transmission Date: 20140127
  Serious: No
  Sender: FDA-Public Use
  Company Number: PHEH2012US021911

PATIENT
  Age: 50 Year
  Sex: Female
  Weight: 77.1 kg

DRUGS (12)
  1. GILENYA [Suspect]
     Indication: MULTIPLE SCLEROSIS
     Route: 048
     Dates: start: 20121010
  2. TOPROL (METOPROLOL SUCCINATE) [Concomitant]
  3. CELEXA (CITALOPRAM HYDROBROMIDE) [Concomitant]
  4. TRIM CO )HYDROCHLOROTHIAZIDE, TRIAMTERENE) [Concomitant]
  5. COZAAR (LOSARTAN POTASSIUM) [Concomitant]
  6. POTASSIUM CHLORIDE (POTASSIUM CHLORIDE) [Concomitant]
  7. PROTONIX (PANTOPRAZOLE SODIUM SESQUIHYDRATE) [Concomitant]
  8. AMBIEN (ZOLPIDEM TARTRATE) [Concomitant]
  9. OMEGA 3 (FISH OIL) [Concomitant]
  10. B 12 (CYANOCOBALAMIN) [Concomitant]
  11. MULTIVIT (VITAMINS NOS) [Concomitant]
  12. ASPIRIN LOW (ACETYLSALICYLIC ACID) [Concomitant]

REACTIONS (3)
  - Musculoskeletal pain [None]
  - Chest discomfort [None]
  - Back pain [None]
